FAERS Safety Report 6159534-4 (Version None)
Quarter: 2009Q2

REPORT INFORMATION
  Report Type: 
  Country: None (occurrence: None)
  Receive Date: 20090416
  Receipt Date: 20090416
  Transmission Date: 20091009
  Serious: No
  Sender: FDA-Public Use
  Company Number: None

PATIENT
  Sex: Female
  Weight: 65.7716 kg

DRUGS (2)
  1. TYLENOL W/ CODEINE NO. 4 [Suspect]
     Indication: BONE PAIN
     Dosage: TYLENOL #4 1-2 TID PO
     Route: 048
     Dates: start: 20081002, end: 20090310
  2. TYLENOL W/ CODEINE NO. 4 [Suspect]
     Indication: NECK PAIN
     Dosage: TYLENOL #4 1-2 TID PO
     Route: 048
     Dates: start: 20081002, end: 20090310

REACTIONS (2)
  - NAUSEA [None]
  - PRODUCT SUBSTITUTION ISSUE [None]
